FAERS Safety Report 21674426 (Version 1)
Quarter: 2022Q4

REPORT INFORMATION
  Report Type: Spontaneous
  Country: AU (occurrence: AU)
  Receive Date: 20221202
  Receipt Date: 20221202
  Transmission Date: 20230113
  Serious: Yes (Other)
  Sender: FDA-Public Use
  Company Number: AU-PFIZER INC-PV202200113790

PATIENT
  Age: 71 Year
  Sex: Female
  Weight: 95 kg

DRUGS (4)
  1. METHOTREXATE SODIUM [Suspect]
     Active Substance: METHOTREXATE SODIUM
     Indication: Scleritis
     Dosage: 20 MG, WEEKLY
  2. PREDNISOLONE [Concomitant]
     Active Substance: PREDNISOLONE
     Indication: Scleritis
     Dosage: 17.5 MG, DAILY
  3. FOLIC ACID [Concomitant]
     Active Substance: FOLIC ACID
     Indication: Scleritis
     Dosage: 5 MG 6/7
  4. ADALIMUMAB [Concomitant]
     Active Substance: ADALIMUMAB
     Indication: Scleritis
     Dosage: 40 MG FORTNIGHTLY

REACTIONS (3)
  - Mucosal inflammation [Unknown]
  - Off label use [Unknown]
  - Drug ineffective for unapproved indication [Unknown]
